FAERS Safety Report 9764283 (Version 4)
Quarter: 2014Q1

REPORT INFORMATION
  Report Type: Report from Study
  Country: CA (occurrence: CA)
  Receive Date: 20131217
  Receipt Date: 20140115
  Transmission Date: 20141002
  Serious: Yes (Other)
  Sender: FDA-Public Use
  Company Number: CA-ROCHE-1318803

PATIENT
  Age: 35 Year
  Sex: Female
  Weight: 69 kg

DRUGS (14)
  1. PERJETA [Suspect]
     Indication: BREAST CANCER
     Route: 042
     Dates: start: 20131119
  2. PERJETA [Suspect]
     Route: 042
     Dates: start: 20131210
  3. HERCEPTIN [Suspect]
     Indication: BREAST CANCER
     Route: 065
     Dates: start: 20120622
  4. HERCEPTIN [Suspect]
     Route: 065
     Dates: start: 201301
  5. TAXOL [Suspect]
     Indication: BREAST CANCER
     Route: 065
     Dates: start: 20120622, end: 201209
  6. FLUOROURACIL [Suspect]
     Indication: PRODUCT USED FOR UNKNOWN INDICATION
     Route: 065
     Dates: start: 20121119
  7. EPIRUBICIN [Suspect]
     Indication: PRODUCT USED FOR UNKNOWN INDICATION
     Route: 065
     Dates: start: 20121119
  8. CYCLOPHOSPHAMIDE [Suspect]
     Indication: PRODUCT USED FOR UNKNOWN INDICATION
     Route: 065
     Dates: start: 20121119
  9. DOCETAXEL [Suspect]
     Indication: BREAST CANCER
     Route: 042
     Dates: start: 20120622
  10. DOCETAXEL [Suspect]
     Route: 042
     Dates: start: 20131028
  11. CALTRATE [Concomitant]
  12. VIADERM-K.C. [Concomitant]
  13. TYLENOL [Concomitant]
     Route: 065
     Dates: start: 20131210
  14. DENOSUMAB [Concomitant]

REACTIONS (6)
  - Mastectomy [Unknown]
  - Recurrent cancer [Unknown]
  - Cough [Unknown]
  - Influenza like illness [Unknown]
  - Heart rate increased [Unknown]
  - Drug ineffective [Unknown]
